FAERS Safety Report 8190334-X (Version None)
Quarter: 2012Q1

REPORT INFORMATION
  Report Type: 
  Country: None (occurrence: None)
  Receive Date: 20120307
  Receipt Date: 20120224
  Transmission Date: 20120608
  Serious: Yes (Other)
  Sender: FDA-Public Use
  Company Number: US-SANOFI-AVENTIS-2012SA012690

PATIENT
  Age: 66 Year
  Sex: Male
  Weight: 88 kg

DRUGS (2)
  1. PLAVIX [Suspect]
     Route: 048
     Dates: start: 19970101
  2. ASPIRIN [Concomitant]
     Dates: start: 20030101

REACTIONS (4)
  - DEVICE OCCLUSION [None]
  - PRODUCT QUALITY ISSUE [None]
  - BODY HEIGHT DECREASED [None]
  - CORONARY ARTERY OCCLUSION [None]
